FAERS Safety Report 11277578 (Version 1)
Quarter: 2015Q3

REPORT INFORMATION
  Report Type: Spontaneous
  Country: US (occurrence: US)
  Receive Date: 20150716
  Receipt Date: 20150716
  Transmission Date: 20151125
  Serious: No
  Sender: FDA-Public Use
  Company Number: US-BAYER-2015-380527

PATIENT

DRUGS (1)
  1. MIRALAX [Suspect]
     Active Substance: POLYETHYLENE GLYCOL 3350
     Indication: CONSTIPATION
     Dosage: 1 DF, QD
     Route: 048
     Dates: start: 20150626, end: 20150630

REACTIONS (7)
  - Product use issue [Unknown]
  - Pain [Unknown]
  - Micturition frequency decreased [Unknown]
  - Gastrointestinal pain [Unknown]
  - Blood pressure systolic decreased [Unknown]
  - Painful defaecation [Unknown]
  - Abdominal pain [None]
